FAERS Safety Report 5114499-9 (Version None)
Quarter: 2006Q3

REPORT INFORMATION
  Report Type: 
  Country: None (occurrence: None)
  Receive Date: 20060926
  Receipt Date: 20060914
  Transmission Date: 20061208
  Serious: Yes (Other)
  Sender: FDA-Public Use
  Company Number: BR-JNJFOC-20060903849

PATIENT
  Age: 2 Year
  Sex: Female

DRUGS (1)
  1. HALDOL SOLUTAB [Suspect]
     Indication: ACCIDENTAL EXPOSURE
     Route: 048

REACTIONS (3)
  - ACCIDENTAL DRUG INTAKE BY CHILD [None]
  - OVERDOSE [None]
  - SOMNOLENCE [None]
